FAERS Safety Report 10488861 (Version 1)
Quarter: 2014Q4

REPORT INFORMATION
  Report Type: Report from Study
  Country: CA (occurrence: CA)
  Receive Date: 20141002
  Receipt Date: 20141002
  Transmission Date: 20150528
  Serious: Yes (Hospitalization)
  Sender: FDA-Public Use
  Company Number: CA-JNJFOC-20140916836

PATIENT
  Age: 14 Year
  Sex: Female
  Weight: 38.2 kg

DRUGS (1)
  1. REMICADE [Suspect]
     Active Substance: INFLIXIMAB
     Indication: CROHN^S DISEASE
     Route: 042
     Dates: start: 20130322

REACTIONS (1)
  - Eating disorder [Unknown]

NARRATIVE: CASE EVENT DATE: 201408
